FAERS Safety Report 7547644-6 (Version None)
Quarter: 2011Q2

REPORT INFORMATION
  Report Type: 
  Country: None (occurrence: None)
  Receive Date: 20110614
  Receipt Date: 20110607
  Transmission Date: 20111010
  Serious: Yes (Other)
  Sender: FDA-Public Use
  Company Number: US-MERCK-1103USA00409

PATIENT
  Age: 46 Year
  Sex: Female
  Weight: 84 kg

DRUGS (8)
  1. IVEMEND [Suspect]
     Indication: CHEMOTHERAPY
     Route: 041
     Dates: start: 20110117, end: 20110117
  2. BENADRYL [Concomitant]
     Route: 065
  3. CISPLATIN AND DOXORUBICIN [Concomitant]
     Indication: BREAST CANCER
     Route: 041
     Dates: start: 20110117
  4. DEXAMETHASONE [Concomitant]
     Route: 041
     Dates: start: 20110117
  5. ATIVAN [Concomitant]
     Route: 041
     Dates: start: 20110117
  6. CYTOXAN [Concomitant]
     Indication: CHEMOTHERAPY
     Route: 051
     Dates: start: 20110117
  7. ALOXI [Concomitant]
     Route: 041
     Dates: start: 20110117
  8. DOXORUBICIN HYDROCHLORIDE [Concomitant]
     Route: 042
     Dates: start: 20110117

REACTIONS (3)
  - THROMBOPHLEBITIS SUPERFICIAL [None]
  - DEEP VEIN THROMBOSIS [None]
  - WRONG TECHNIQUE IN DRUG USAGE PROCESS [None]
